FAERS Safety Report 10742348 (Version 1)
Quarter: 2015Q1

REPORT INFORMATION
  Report Type: Spontaneous
  Country: US (occurrence: US)
  Receive Date: 20150127
  Receipt Date: 20150127
  Transmission Date: 20150721
  Serious: No
  Sender: FDA-Public Use
  Company Number: US-FRI-1000073875

PATIENT
  Age: 50 Year
  Sex: Female

DRUGS (1)
  1. TEFLARO [Suspect]
     Active Substance: CEFTAROLINE FOSAMIL
     Indication: PNEUMONIA

REACTIONS (1)
  - Nephropathy toxic [Unknown]
